FAERS Safety Report 13849246 (Version 1)
Quarter: 2017Q3

REPORT INFORMATION
  Report Type: Spontaneous
  Country: US (occurrence: US)
  Receive Date: 20170809
  Receipt Date: 20170809
  Transmission Date: 20171127
  Serious: No
  Sender: FDA-Public Use
  Company Number: US-LUPIN PHARMACEUTICALS INC.-2016-04569

PATIENT
  Sex: Male

DRUGS (1)
  1. LEVETIRACETAM TABLETS USP, 250 MG [Suspect]
     Active Substance: LEVETIRACETAM
     Indication: SEIZURE
     Dosage: 2 DF,QD,
     Route: 065

REACTIONS (5)
  - Hyperhidrosis [Unknown]
  - Nausea [Unknown]
  - Balance disorder [Unknown]
  - Vertigo [Unknown]
  - Dizziness [Unknown]
